FAERS Safety Report 24144322 (Version 1)
Quarter: 2024Q3

REPORT INFORMATION
  Report Type: Spontaneous
  Country: US (occurrence: US)
  Receive Date: 20240728
  Receipt Date: 20240728
  Transmission Date: 20241017
  Serious: No
  Sender: LUPIN
  Company Number: US-LUPIN PHARMACEUTICALS INC.-2024-06758

PATIENT

DRUGS (1)
  1. BUPROPION HYDROCHLORIDE [Suspect]
     Active Substance: BUPROPION HYDROCHLORIDE
     Indication: Asthenia
     Dosage: 75 MG, PRN (150XL EVERY MORNING AS NEEDED 75MG TWICE A DAY OR ONCE DURING COLD WINTER MONTHS AND LES
     Route: 065

REACTIONS (5)
  - Bedridden [Unknown]
  - Feeling abnormal [Unknown]
  - Apathy [Unknown]
  - Procrastination [Unknown]
  - Libido decreased [Unknown]
